FAERS Safety Report 6131951-8 (Version None)
Quarter: 2009Q1

REPORT INFORMATION
  Report Type: 
  Country: None (occurrence: None)
  Receive Date: 20090325
  Receipt Date: 20090319
  Transmission Date: 20090719
  Serious: Yes (Other)
  Sender: FDA-Public Use
  Company Number: US-BRISTOL-MYERS SQUIBB COMPANY-13539663

PATIENT
  Age: 74 Year
  Sex: Female

DRUGS (7)
  1. KENALOG-40 [Suspect]
     Indication: MACULAR DEGENERATION
     Dosage: THE INJECTION WAS INTRAVITREAL.
     Route: 031
     Dates: start: 20060629, end: 20060629
  2. KENALOG-40 [Suspect]
     Indication: MACULOPATHY
     Dosage: THE INJECTION WAS INTRAVITREAL.
     Route: 031
     Dates: start: 20060629, end: 20060629
  3. MULTI-VITAMIN [Concomitant]
  4. LOVAZA [Concomitant]
  5. ESTER-C [Concomitant]
  6. VITAMIN D [Concomitant]
  7. CALCIUM + MAGNESIUM [Concomitant]

REACTIONS (1)
  - ENDOPHTHALMITIS [None]
